FAERS Safety Report 7555246-0 (Version None)
Quarter: 2011Q2

REPORT INFORMATION
  Report Type: 
  Country: None (occurrence: None)
  Receive Date: 20110617
  Receipt Date: 20110614
  Transmission Date: 20111010
  Serious: Yes (Death, Hospitalization)
  Sender: FDA-Public Use
  Company Number: PHHY2011US31503

PATIENT
  Sex: Female
  Weight: 78.413 kg

DRUGS (11)
  1. ZOMETA [Suspect]
     Dosage: 4 MG, UNK
     Dates: start: 20091204
  2. VERPAMIL HCL [Concomitant]
     Dosage: 240 MG, UNK
     Route: 048
  3. ZOMETA [Suspect]
     Dosage: 4 MG, UNK
     Dates: start: 20100103
  4. HYDROCHLOROTHIAZIDE [Concomitant]
     Dosage: 20 MG, UNK
     Route: 048
  5. ZOMETA [Suspect]
     Dosage: 4 MG, UNK
     Dates: start: 20100104
  6. ZOMETA [Suspect]
     Dosage: 4 MG, UNK
     Dates: start: 20091106
  7. ZOMETA [Suspect]
     Dosage: 4 MG, UNK
     Dates: start: 20100329
  8. CALCIUM CHANNEL BLOCKERS [Concomitant]
     Indication: ARRHYTHMIA
  9. ZOMETA [Suspect]
     Dosage: 4 MG, UNK
     Dates: start: 20100521
  10. ZOMETA [Suspect]
     Dosage: 4 MG, UNK
     Dates: start: 20100618
  11. ZOMETA [Suspect]
     Dosage: 4 MG, UNK
     Dates: start: 20100423

REACTIONS (4)
  - NEOPLASM PROGRESSION [None]
  - HERPES ZOSTER DISSEMINATED [None]
  - ASTHENIA [None]
  - NEOPLASM MALIGNANT [None]
